FAERS Safety Report 11793945 (Version 1)
Quarter: 2015Q4

REPORT INFORMATION
  Report Type: Report from Study
  Country: US (occurrence: US)
  Receive Date: 20151202
  Receipt Date: 20151202
  Transmission Date: 20160305
  Serious: Yes (Other)
  Sender: FDA-Public Use
  Company Number: US-BAYER-2015-429307

PATIENT
  Age: 78 Year
  Sex: Male

DRUGS (10)
  1. NEXAVAR [Suspect]
     Active Substance: SORAFENIB
     Indication: HEPATIC CANCER
     Dosage: 400 MG, BID
     Route: 048
     Dates: start: 20150908
  2. INSULIN [Concomitant]
     Active Substance: INSULIN NOS
  3. APIDRA [Concomitant]
     Active Substance: INSULIN GLULISINE
  4. ROSUVASTATIN [Concomitant]
     Active Substance: ROSUVASTATIN
  5. NEXAVAR [Suspect]
     Active Substance: SORAFENIB
     Indication: PANCREATIC CARCINOMA
     Dosage: 400 MG, QD
     Route: 048
  6. ASA [Concomitant]
     Active Substance: ASPIRIN
  7. PIOGLITAZONE. [Concomitant]
     Active Substance: PIOGLITAZONE
  8. CLOPIDOGREL [Concomitant]
     Active Substance: CLOPIDOGREL BISULFATE
  9. METFORMIN [Concomitant]
     Active Substance: METFORMIN HYDROCHLORIDE
  10. ATENOLOL. [Concomitant]
     Active Substance: ATENOLOL

REACTIONS (7)
  - Fatigue [Not Recovered/Not Resolved]
  - Paraesthesia [Recovering/Resolving]
  - Lethargy [None]
  - Palmar-plantar erythrodysaesthesia syndrome [Recovering/Resolving]
  - Pain in extremity [Recovering/Resolving]
  - Diabetes mellitus [None]
  - Asthenia [None]

NARRATIVE: CASE EVENT DATE: 20150921
